FAERS Safety Report 12575800 (Version 1)
Quarter: 2016Q3

REPORT INFORMATION
  Report Type: Spontaneous
  Country: US (occurrence: US)
  Receive Date: 20160720
  Receipt Date: 20160720
  Transmission Date: 20161109
  Serious: No
  Sender: FDA-Public Use
  Company Number: US-TEVA-675216USA

PATIENT
  Sex: Female

DRUGS (2)
  1. ADVAIR DISKUS [Concomitant]
     Active Substance: FLUTICASONE PROPIONATE\SALMETEROL XINAFOATE
     Route: 065
  2. PROAIR HFA [Suspect]
     Active Substance: ALBUTEROL SULFATE
     Route: 065

REACTIONS (6)
  - Reading disorder [Unknown]
  - Energy increased [Unknown]
  - Initial insomnia [Unknown]
  - Feeling abnormal [Unknown]
  - Judgement impaired [Unknown]
  - Intentional product misuse [Unknown]
